FAERS Safety Report 4276287-5 (Version None)
Quarter: 2004Q1

REPORT INFORMATION
  Report Type: 
  Country: None (occurrence: None)
  Receive Date: 20040116
  Receipt Date: 20031211
  Transmission Date: 20041129
  Serious: Yes (Hospitalization)
  Sender: FDA-Public Use
  Company Number: 200314306

PATIENT
  Age: 6 Year
  Sex: Male
  Weight: 17.9 kg

DRUGS (1)
  1. BOTOX [Suspect]
     Indication: MUSCLE SPASTICITY
     Dosage: 200 UNITS PRN IM
     Route: 030

REACTIONS (4)
  - CRYING [None]
  - MUSCLE SPASMS [None]
  - PAIN [None]
  - POST PROCEDURAL COMPLICATION [None]
